FAERS Safety Report 5897993-2 (Version None)
Quarter: 2008Q3

REPORT INFORMATION
  Report Type: 
  Country: None (occurrence: None)
  Receive Date: 20080925
  Receipt Date: 20080918
  Transmission Date: 20090109
  Serious: Yes (Other)
  Sender: FDA-Public Use
  Company Number: US-ASTRAZENECA-2008UW19726

PATIENT
  Sex: Female

DRUGS (8)
  1. SYMBICORT [Suspect]
     Route: 055
  2. CARDIZEM [Concomitant]
  3. HYDROCHLOROTHIAZIDE [Concomitant]
  4. K DUR [Concomitant]
  5. NEXIUM [Concomitant]
     Route: 048
  6. XANAX [Concomitant]
  7. ALBUTEROL [Concomitant]
  8. XOPENEX [Concomitant]

REACTIONS (2)
  - DIZZINESS [None]
  - LOSS OF CONSCIOUSNESS [None]
